FAERS Safety Report 15207247 (Version 2)
Quarter: 2018Q3

REPORT INFORMATION
  Report Type: Spontaneous
  Country: JP (occurrence: JP)
  Receive Date: 20180727
  Receipt Date: 20180729
  Transmission Date: 20181010
  Serious: Yes (Death, Other)
  Sender: FDA-Public Use
  Company Number: JP-SAKK-2018SA200828AA

PATIENT
  Sex: Male

DRUGS (4)
  1. JEVTANA [Suspect]
     Active Substance: CABAZITAXEL
     Dosage: UNK
     Route: 042
     Dates: start: 20150402, end: 20150402
  2. JEVTANA [Suspect]
     Active Substance: CABAZITAXEL
     Dosage: UNK
     Route: 042
     Dates: start: 20150224, end: 20150224
  3. JEVTANA [Suspect]
     Active Substance: CABAZITAXEL
     Indication: HORMONE-REFRACTORY PROSTATE CANCER
     Dosage: UNK
     Route: 042
     Dates: start: 20150121, end: 20150121
  4. JEVTANA [Suspect]
     Active Substance: CABAZITAXEL
     Dosage: UNK
     Route: 042
     Dates: start: 20150501, end: 20150501

REACTIONS (4)
  - Bladder pain [Unknown]
  - Haemoglobin decreased [Unknown]
  - Haematuria [Unknown]
  - Metastases to liver [Fatal]

NARRATIVE: CASE EVENT DATE: 20150304
